FAERS Safety Report 4950992-7 (Version None)
Quarter: 2006Q1

REPORT INFORMATION
  Report Type: 
  Country: None (occurrence: None)
  Receive Date: 20060201
  Receipt Date: 20051001
  Transmission Date: 20060701
  Serious: No
  Sender: FDA-Public Use
  Company Number: 2005PV002784

PATIENT
  Age: 61 Year
  Sex: Male

DRUGS (15)
  1. BYETTA [Suspect]
     Indication: DIABETES MELLITUS NON-INSULIN-DEPENDENT
     Dosage: SEE IMAGE
     Route: 058
     Dates: start: 20050101, end: 20050101
  2. BYETTA [Suspect]
     Indication: DIABETES MELLITUS NON-INSULIN-DEPENDENT
     Dosage: SEE IMAGE
     Route: 058
     Dates: start: 20050901, end: 20050101
  3. ACTOS [Concomitant]
  4. GLYBURIDE [Concomitant]
  5. STARLIX [Concomitant]
  6. ATACAND [Concomitant]
  7. NORVASC [Concomitant]
  8. NIASPAN [Concomitant]
  9. FLOMAX [Concomitant]
  10. ZOCOR [Concomitant]
  11. TOPROL-XL [Concomitant]
  12. KLOR-CON [Concomitant]
  13. FUROSEMIDE [Concomitant]
  14. ASPIRIN [Concomitant]
  15. MULTI-VITAMIN [Concomitant]

REACTIONS (3)
  - DIZZINESS [None]
  - HEART RATE IRREGULAR [None]
  - RESPIRATION ABNORMAL [None]
